FAERS Safety Report 14599907 (Version 1)
Quarter: 2018Q1

REPORT INFORMATION
  Report Type: Spontaneous
  Country: US (occurrence: US)
  Receive Date: 20180304
  Receipt Date: 20180304
  Transmission Date: 20180509
  Serious: No
  Sender: FDA-Public Use
  Company Number: None

PATIENT
  Age: 63 Year
  Sex: Female
  Weight: 74.7 kg

DRUGS (4)
  1. OMEGA-3 ACIDS [Concomitant]
     Active Substance: OMEGA-3 FATTY ACIDS
  2. AZITHROMYCIN ANHYDROUS. [Concomitant]
     Active Substance: AZITHROMYCIN ANHYDROUS
  3. PREDNISONE 20 MG [Suspect]
     Active Substance: PREDNISONE
     Indication: BRONCHITIS BACTERIAL
     Dosage: QUANTITY:3 TABLET(S);OTHER FREQUENCY:3 TABS DAY 1, 2 TA;?
     Route: 048
     Dates: start: 20180228, end: 20180303
  4. PROAIR HFA [Concomitant]
     Active Substance: ALBUTEROL SULFATE

REACTIONS (6)
  - Anosmia [None]
  - Swollen tongue [None]
  - Ageusia [None]
  - Swelling face [None]
  - Erythema [None]
  - Dyspnoea [None]

NARRATIVE: CASE EVENT DATE: 20180303
